FAERS Safety Report 9870276 (Version 1)
Quarter: 2014Q1

REPORT INFORMATION
  Report Type: Spontaneous
  Country: US (occurrence: None)
  Receive Date: 20140131
  Receipt Date: 20140131
  Transmission Date: 20141002
  Serious: Yes (Death)
  Sender: FDA-Public Use
  Company Number: 2014AP000404

PATIENT
  Age: 52 Year
  Sex: Female

DRUGS (5)
  1. TRAMADOL HYDROCHLORIDE [Suspect]
  2. PAROXETINE [Suspect]
     Route: 048
  3. METHADONE [Suspect]
     Route: 048
  4. DIPHENHYDRAMINE [Suspect]
     Route: 048
  5. DIPHENHYDRAMINE [Suspect]
     Route: 048

REACTIONS (1)
  - Drug abuse [None]
